FAERS Safety Report 8361101-9 (Version None)
Quarter: 2012Q2

REPORT INFORMATION
  Report Type: 
  Country: None (occurrence: None)
  Receive Date: 20120515
  Receipt Date: 20120509
  Transmission Date: 20120825
  Serious: Yes (Hospitalization)
  Sender: FDA-Public Use
  Company Number: US-BAYER-2011-107557

PATIENT
  Age: 26 Year
  Sex: Female
  Weight: 105.22 kg

DRUGS (2)
  1. DROSPIRENONE AND ETHINYL ESTRADIOL [Suspect]
     Indication: CONTRACEPTION
     Dosage: UNK
     Route: 048
     Dates: start: 20090408, end: 20091005
  2. ALBUTEROL [Concomitant]
     Indication: ASTHMA
     Dosage: UNK
     Dates: start: 20090915, end: 20091005

REACTIONS (4)
  - PAIN [None]
  - DYSPNOEA [None]
  - PULMONARY EMBOLISM [None]
  - INJURY [None]
